APPROVED DRUG PRODUCT: DIGOXIN
Active Ingredient: DIGOXIN
Strength: 0.25MG/ML
Dosage Form/Route: INJECTABLE;INJECTION
Application: A040481 | Product #001 | TE Code: AP
Applicant: SANDOZ INC
Approved: Aug 21, 2003 | RLD: No | RS: No | Type: RX